FAERS Safety Report 5774229-4 (Version None)
Quarter: 2008Q2

REPORT INFORMATION
  Report Type: 
  Country: None (occurrence: None)
  Receive Date: 20080601
  Receipt Date: 20080324
  Transmission Date: 20081010
  Serious: No
  Sender: FDA-Public Use
  Company Number: US200803005698

PATIENT
  Age: 80 Year
  Sex: Male
  Weight: 86.2 kg

DRUGS (9)
  1. BYETTA [Suspect]
     Indication: INSULIN-REQUIRING TYPE 2 DIABETES MELLITUS
     Dosage: 5 UG, 2/D, SUBCUTANEOUS
     Route: 058
     Dates: start: 20080114
  2. NOVOLIN R [Concomitant]
  3. NOVOLIN N [Concomitant]
  4. BENAZEPRIL HCL [Concomitant]
  5. ASPIRIN /USA/ (ACETYLSALICYLIC ACID) [Concomitant]
  6. CHLORTHALIDONE [Concomitant]
  7. TOPROL-XL [Concomitant]
  8. TERAZOSIN HCL [Concomitant]
  9. ZOCOR [Concomitant]

REACTIONS (3)
  - DECREASED APPETITE [None]
  - FATIGUE [None]
  - WEIGHT DECREASED [None]
